FAERS Safety Report 13360610 (Version 5)
Quarter: 2017Q4

REPORT INFORMATION
  Report Type: Spontaneous
  Country: US (occurrence: US)
  Receive Date: 20170322
  Receipt Date: 20171013
  Transmission Date: 20180320
  Serious: Yes (Hospitalization)
  Sender: FDA-Public Use
  Company Number: US-ACTELION-A-US2017-151231

PATIENT
  Age: 61 Year
  Sex: Female

DRUGS (2)
  1. SILDENAFIL. [Concomitant]
     Active Substance: SILDENAFIL
     Dosage: 80 MG, TID
     Dates: start: 20120830
  2. OPSUMIT [Suspect]
     Active Substance: MACITENTAN
     Indication: PULMONARY ARTERIAL HYPERTENSION
     Dosage: 10 MG, QD
     Route: 048
     Dates: start: 20140101

REACTIONS (11)
  - Pneumonia [Recovered/Resolved]
  - Peripheral swelling [Unknown]
  - Oedema [Unknown]
  - Influenza [Recovered/Resolved]
  - Localised infection [Unknown]
  - Rash [Unknown]
  - Blood iron decreased [Unknown]
  - Renal impairment [Unknown]
  - Drug dose omission [Recovered/Resolved]
  - Unevaluable event [Unknown]
  - Nocturnal dyspnoea [Recovered/Resolved]

NARRATIVE: CASE EVENT DATE: 201702
